FAERS Safety Report 9042909 (Version 1)
Quarter: 2013Q1

REPORT INFORMATION
  Report Type: Report from Study
  Country: US (occurrence: US)
  Receive Date: 20130129
  Receipt Date: 20130129
  Transmission Date: 20140127
  Serious: No
  Sender: FDA-Public Use
  Company Number: US-ABBOTT-12P-163-0912346-00

PATIENT
  Age: 48 Year
  Sex: Female

DRUGS (6)
  1. HUMIRA 40 MG/0.8 ML PEN [Suspect]
     Indication: CROHN^S DISEASE
     Dates: start: 20120222, end: 20120222
  2. HUMIRA 40 MG/0.8 ML PEN [Suspect]
     Dosage: 2 INJECTIONS
     Dates: start: 20120223, end: 20120223
  3. HUMIRA 40 MG/0.8 ML PEN [Suspect]
  4. PROZAC [Concomitant]
     Indication: DEPRESSION
  5. PATANASE [Concomitant]
     Indication: HYPERSENSITIVITY
  6. SYNTHROID [Concomitant]
     Indication: PRODUCT USED FOR UNKNOWN INDICATION

REACTIONS (2)
  - Dizziness [Recovered/Resolved]
  - Nervousness [Unknown]
